FAERS Safety Report 6480950-5 (Version None)
Quarter: 2009Q4

REPORT INFORMATION
  Report Type: 
  Country: None (occurrence: None)
  Receive Date: 20091208
  Receipt Date: 20091203
  Transmission Date: 20100525
  Serious: Yes (Life-Threatening, Hospitalization)
  Sender: FDA-Public Use
  Company Number: PHHO2009US14707

PATIENT
  Sex: Male
  Weight: 61.4 kg

DRUGS (3)
  1. TACROLIMUS COMP-TAC+ [Suspect]
     Indication: LIVER TRANSPLANT
     Dosage: 2 MG, BID
     Route: 048
     Dates: start: 20091119
  2. CERTICAN [Suspect]
     Indication: LIVER TRANSPLANT
     Dosage: 2 MG, BID
     Route: 048
     Dates: start: 20091119
  3. DEXTRAN INJ [Concomitant]

REACTIONS (6)
  - DIARRHOEA [None]
  - HAEMATOCRIT DECREASED [None]
  - LEUKOCYTOSIS [None]
  - MALAISE [None]
  - PERITONEAL HAEMORRHAGE [None]
  - PYREXIA [None]
